FAERS Safety Report 20477910 (Version 3)
Quarter: 2022Q1

REPORT INFORMATION
  Report Type: Spontaneous
  Country: US (occurrence: US)
  Receive Date: 20220216
  Receipt Date: 20220320
  Transmission Date: 20220423
  Serious: No
  Sender: FDA-Public Use
  Company Number: US-GSKCCFUS-Case-01296543_AE-75553

PATIENT
  Sex: Male

DRUGS (1)
  1. ADVAIR DISKUS [Suspect]
     Active Substance: FLUTICASONE PROPIONATE\SALMETEROL XINAFOATE
     Indication: Product used for unknown indication
     Dosage: UNK 250/50MCG
     Route: 055
     Dates: start: 2006

REACTIONS (5)
  - Cough [Recovered/Resolved]
  - Underdose [Unknown]
  - Incorrect dose administered [Unknown]
  - Drug ineffective [Unknown]
  - Product complaint [Unknown]
